FAERS Safety Report 5828826-8 (Version None)
Quarter: 2008Q3

REPORT INFORMATION
  Report Type: 
  Country: None (occurrence: None)
  Receive Date: 20080731
  Receipt Date: 20080721
  Transmission Date: 20090109
  Serious: Yes (Hospitalization)
  Sender: FDA-Public Use
  Company Number: BR-ABBOTT-08P-020-0455313-00

PATIENT
  Sex: Female
  Weight: 68 kg

DRUGS (5)
  1. HUMIRA [Suspect]
     Indication: RHEUMATOID ARTHRITIS
     Route: 058
     Dates: start: 20071101, end: 20080201
  2. CARVEDILOL [Concomitant]
     Indication: HEART RATE INCREASED
     Route: 048
     Dates: start: 20080301
  3. DEFLAZACORT [Concomitant]
     Indication: DRUG USE FOR UNKNOWN INDICATION
  4. ACETYLSALICYLIC ACID SRT [Concomitant]
     Indication: DRUG USE FOR UNKNOWN INDICATION
  5. VALSARTAN [Concomitant]
     Indication: HYPERTENSION

REACTIONS (5)
  - HYPERTENSIVE CRISIS [None]
  - INFECTED SKIN ULCER [None]
  - PERIPHERAL VASCULAR DISORDER [None]
  - TOE AMPUTATION [None]
  - ULCER [None]
